FAERS Safety Report 4689197-6 (Version None)
Quarter: 2005Q2

REPORT INFORMATION
  Report Type: 
  Country: None (occurrence: None)
  Receive Date: 20050613
  Receipt Date: 20050603
  Transmission Date: 20051028
  Serious: Yes (Life-Threatening)
  Sender: FDA-Public Use
  Company Number: CA-ABBOTT-05P-028-0302528-00

PATIENT
  Age: 43 Year
  Sex: Female

DRUGS (1)
  1. KALETRA [Suspect]
     Indication: PROPHYLAXIS AGAINST HIV INFECTION
     Route: 048
     Dates: start: 20050513

REACTIONS (1)
  - ANAPHYLACTIC REACTION [None]
